FAERS Safety Report 7942062-0 (Version None)
Quarter: 2011Q4

REPORT INFORMATION
  Report Type: 
  Country: None (occurrence: None)
  Receive Date: 20111128
  Receipt Date: 20111128
  Transmission Date: 20120403
  Serious: Yes (Hospitalization)
  Sender: FDA-Public Use
  Company Number: None

PATIENT
  Age: 41 Year
  Sex: Female
  Weight: 65.77 kg

DRUGS (1)
  1. DOXYCYCLINE HYCLATE [Suspect]
     Indication: ACNE
     Dosage: 100 MG CAPSULE
     Route: 048
     Dates: start: 20111121, end: 20111123

REACTIONS (7)
  - NAUSEA [None]
  - OESOPHAGEAL DISORDER [None]
  - GASTRIC DISORDER [None]
  - MIDDLE INSOMNIA [None]
  - CHEST PAIN [None]
  - DYSPEPSIA [None]
  - DRUG INEFFECTIVE [None]
